FAERS Safety Report 23431807 (Version 1)
Quarter: 2024Q1

REPORT INFORMATION
  Report Type: Spontaneous
  Country: JP (occurrence: JP)
  Receive Date: 20240123
  Receipt Date: 20240123
  Transmission Date: 20240410
  Serious: Yes (Other)
  Sender: FDA-Public Use
  Company Number: JP-SUN PHARMACEUTICAL INDUSTRIES LTD-2024RR-428039

PATIENT
  Age: 40 Year
  Sex: Male

DRUGS (7)
  1. OXALIPLATIN [Suspect]
     Active Substance: OXALIPLATIN
     Indication: Colorectal cancer metastatic
     Dosage: CAPOX+BEV, FIRST-LINE SYSTEMIC CHEMOTHERAPY
     Route: 065
  2. CAPECITABINE [Suspect]
     Active Substance: CAPECITABINE
     Indication: Colorectal cancer metastatic
     Dosage: CAPOX+BEV, FIRST-LINE SYSTEMIC CHEMOTHERAPY
     Route: 065
  3. IRINOTECAN [Suspect]
     Active Substance: IRINOTECAN
     Indication: Colorectal cancer metastatic
     Dosage: FOLFIRI+RAM, SECOND-LINE CHEMOTHERAPY
     Route: 065
  4. LEUCOVORIN CALCIUM [Suspect]
     Active Substance: LEUCOVORIN CALCIUM
     Indication: Colorectal cancer metastatic
     Dosage: FOLFIRI+RAM, SECOND-LINE CHEMOTHERAPY
     Route: 065
  5. BEVACIZUMAB [Suspect]
     Active Substance: BEVACIZUMAB
     Indication: Colorectal cancer metastatic
     Dosage: CAPOX+BEV, FIRST-LINE SYSTEMIC CHEMOTHERAPY
     Route: 065
  6. FLUOROURACIL [Suspect]
     Active Substance: FLUOROURACIL
     Indication: Colorectal cancer metastatic
     Dosage: FOLFIRI+RAM, SECOND-LINE CHEMOTHERAPY
     Route: 065
  7. RAMUCIRUMAB [Suspect]
     Active Substance: RAMUCIRUMAB
     Indication: Colorectal cancer metastatic
     Dosage: FOLFIRI+RAM, SECOND-LINE CHEMOTHERAPY
     Route: 065

REACTIONS (2)
  - Therapy partial responder [Unknown]
  - Disease progression [Unknown]
